FAERS Safety Report 21815368 (Version 1)
Quarter: 2023Q1

REPORT INFORMATION
  Report Type: Spontaneous
  Country: SG (occurrence: SG)
  Receive Date: 20230104
  Receipt Date: 20230104
  Transmission Date: 20230417
  Serious: Yes (Other)
  Sender: FDA-Public Use
  Company Number: SG-SUN PHARMACEUTICAL INDUSTRIES LTD-2022R1-370977

PATIENT
  Age: 59 Year
  Sex: Female

DRUGS (2)
  1. DEXAMETHASONE [Suspect]
     Active Substance: DEXAMETHASONE
     Indication: POEMS syndrome
     Dosage: 20 MILLIGRAM, WEEKLY
     Route: 065
  2. LENALIDOMIDE [Suspect]
     Active Substance: LENALIDOMIDE
     Indication: POEMS syndrome
     Dosage: 25 MILLIGRAM, DAILY
     Route: 065

REACTIONS (2)
  - Therapy non-responder [Unknown]
  - Condition aggravated [Unknown]
